FAERS Safety Report 25859769 (Version 1)
Quarter: 2025Q3

REPORT INFORMATION
  Report Type: Spontaneous
  Country: US (occurrence: US)
  Receive Date: 20250929
  Receipt Date: 20250929
  Transmission Date: 20251020
  Serious: No
  Sender: TEVA
  Company Number: US-TEVA-VS-3375187

PATIENT
  Age: 32 Year
  Sex: Male

DRUGS (1)
  1. UZEDY [Suspect]
     Active Substance: RISPERIDONE
     Indication: Schizophrenia
     Dosage: Q1M
     Route: 065

REACTIONS (4)
  - Irritability [Unknown]
  - Therapeutic response shortened [Unknown]
  - Anger [Unknown]
  - Off label use [Unknown]
